FAERS Safety Report 13543771 (Version 1)
Quarter: 2017Q2

REPORT INFORMATION
  Report Type: Spontaneous
  Country: GB (occurrence: GB)
  Receive Date: 20170515
  Receipt Date: 20170515
  Transmission Date: 20170830
  Serious: Yes (Other)
  Sender: FDA-Public Use
  Company Number: GB-AUROBINDO-AUR-APL-2017-33692

PATIENT
  Sex: Male

DRUGS (2)
  1. HUMALOG MIX50/50 [Suspect]
     Active Substance: INSULIN LISPRO
     Indication: PRODUCT USED FOR UNKNOWN INDICATION
     Dosage: 120 U, TID
     Route: 065
     Dates: start: 2009
  2. METFORMIN [Suspect]
     Active Substance: METFORMIN HYDROCHLORIDE
     Indication: PRODUCT USED FOR UNKNOWN INDICATION
     Dosage: UNK, UNKNOWN
     Route: 065

REACTIONS (8)
  - Renal failure [Unknown]
  - Blood potassium increased [Unknown]
  - Dyspnoea [Unknown]
  - Malaise [Unknown]
  - Oedema [Unknown]
  - Fluid retention [Unknown]
  - Drug intolerance [Unknown]
  - Incontinence [Unknown]

NARRATIVE: CASE EVENT DATE: 2013
